FAERS Safety Report 6519368-5 (Version None)
Quarter: 2009Q4

REPORT INFORMATION
  Report Type: 
  Country: None (occurrence: None)
  Receive Date: 20091228
  Receipt Date: 20091221
  Transmission Date: 20100525
  Serious: Yes (Life-Threatening)
  Sender: FDA-Public Use
  Company Number: GXKR2009FR13124

PATIENT
  Weight: 2.76 kg

DRUGS (2)
  1. AMOXICILLIN [Suspect]
     Dosage: MATERNAL DOSE: 2 G
     Route: 064
  2. ADRENALINE [Concomitant]
     Dosage: MATERNAL DOSE: 2 X 200 UG
     Route: 064

REACTIONS (4)
  - BRADYCARDIA FOETAL [None]
  - CAESAREAN SECTION [None]
  - DRUG EXPOSURE DURING PREGNANCY [None]
  - ENDOTRACHEAL INTUBATION [None]
